FAERS Safety Report 17281465 (Version 2)
Quarter: 2021Q2

REPORT INFORMATION
  Report Type: Spontaneous
  Country: NL (occurrence: NL)
  Receive Date: 20200117
  Receipt Date: 20210412
  Transmission Date: 20210716
  Serious: Yes (Other)
  Sender: FDA-Public Use
  Company Number: NL-BAYER-2020-006312

PATIENT
  Age: 24 Year
  Sex: Female

DRUGS (1)
  1. MIRENA [Suspect]
     Active Substance: LEVONORGESTREL
     Dosage: 20 MCG/24HR, CONT
     Route: 015
     Dates: start: 2015

REACTIONS (3)
  - Device breakage [Not Recovered/Not Resolved]
  - Embedded device [Not Recovered/Not Resolved]
  - Complication of device removal [None]

NARRATIVE: CASE EVENT DATE: 20200108
